FAERS Safety Report 23333764 (Version 1)
Quarter: 2023Q4

REPORT INFORMATION
  Report Type: Spontaneous
  Country: US (occurrence: US)
  Receive Date: 20231223
  Receipt Date: 20231223
  Transmission Date: 20240109
  Serious: No
  Sender: FDA-Public Use
  Company Number: US-SA-2023SA391301

PATIENT
  Age: 47 Year
  Sex: Female

DRUGS (1)
  1. CAPRELSA [Suspect]
     Active Substance: VANDETANIB
     Indication: Thyroid cancer
     Dosage: 300 MG, QOW
     Route: 048
     Dates: start: 20200108, end: 2023

REACTIONS (4)
  - Nasopharyngitis [Unknown]
  - Pain in extremity [Unknown]
  - Hernia repair [Unknown]
  - Inappropriate schedule of product administration [Unknown]

NARRATIVE: CASE EVENT DATE: 20200108
